FAERS Safety Report 13354029 (Version 1)
Quarter: 2017Q1

REPORT INFORMATION
  Report Type: Spontaneous
  Country: US (occurrence: US)
  Receive Date: 20170320
  Receipt Date: 20170320
  Transmission Date: 20170429
  Serious: Yes (Other)
  Sender: FDA-Public Use
  Company Number: None

PATIENT
  Age: 31 Year
  Sex: Female
  Weight: 72.45 kg

DRUGS (11)
  1. ALLERGY RELIEF (CETIRIZINE HYDROCHLORIDE) [Suspect]
     Active Substance: CETIRIZINE HYDROCHLORIDE
     Indication: MAST CELL ACTIVATION SYNDROME
     Dosage: ?          QUANTITY:14 TABLET(S);?
     Route: 048
     Dates: start: 20161114, end: 20170314
  2. ALOE VERA [Concomitant]
     Active Substance: ALOE VERA LEAF
  3. SINGULAIR [Concomitant]
     Active Substance: MONTELUKAST SODIUM
  4. NASACORT [Concomitant]
     Active Substance: TRIAMCINOLONE ACETONIDE
  5. NETTLE LEAF [Concomitant]
  6. TART CHERRY AND TUMERIC [Concomitant]
  7. ZANTAC [Concomitant]
     Active Substance: RANITIDINE HYDROCHLORIDE
  8. CROMOLYN [Concomitant]
     Active Substance: CROMOLYN
  9. VITAMIN D [Concomitant]
     Active Substance: CHOLECALCIFEROL
  10. VITAMIN B12 [Concomitant]
     Active Substance: CYANOCOBALAMIN
  11. GLUCOSOMINE CHONDROITIN [Concomitant]

REACTIONS (4)
  - Pruritus [None]
  - Condition aggravated [None]
  - Palpitations [None]
  - Therapy cessation [None]

NARRATIVE: CASE EVENT DATE: 20170316
